FAERS Safety Report 5266553-9 (Version None)
Quarter: 2007Q1

REPORT INFORMATION
  Report Type: 
  Country: None (occurrence: None)
  Receive Date: 20070315
  Receipt Date: 20070307
  Transmission Date: 20070707
  Serious: Yes (Other)
  Sender: FDA-Public Use
  Company Number: GB-PFIZER INC-2007017862

PATIENT
  Sex: Male

DRUGS (2)
  1. EXUBERA [Suspect]
     Indication: DIABETES MELLITUS
     Route: 055
  2. INSUMAN COMB 25 [Concomitant]

REACTIONS (4)
  - COUGH [None]
  - HAEMOPTYSIS [None]
  - HAEMORRHAGE [None]
  - PRODUCTIVE COUGH [None]
